FAERS Safety Report 7555597 (Version 4)
Quarter: 2013Q2

REPORT INFORMATION
  Report Type: Spontaneous
  Country: US (occurrence: None)
  Receive Date: 20100826
  Receipt Date: 20120628
  Transmission Date: 20140414
  Serious: Yes (Other)
  Sender: FDA-Public Use
  Company Number: PHHY2010US54269

PATIENT
  Age: 80 Year
  Sex: Female

DRUGS (5)
  1. RECLAST [Suspect]
     Indication: OSTEOPOROSIS
     Dosage: ONCE YEAR
     Route: 042
     Dates: start: 20090305
  2. LEVOXYL [Concomitant]
  3. SINGULAR (MONTELUKAST) [Concomitant]
  4. ADVIL (MEFENAMIC ACID) [Concomitant]
  5. IMIPRAMINE (IMIPRAMINE) (IMIPRAMINE) [Concomitant]

REACTIONS (5)
  - OSTEONECROSIS OF JAW [None]
  - BONE DISORDER [None]
  - Tenderness [None]
  - Erythema [None]
  - Exposed bone in jaw [None]
